FAERS Safety Report 7226269-6 (Version None)
Quarter: 2011Q1

REPORT INFORMATION
  Report Type: 
  Country: None (occurrence: None)
  Receive Date: 20110114
  Receipt Date: 20110105
  Transmission Date: 20110831
  Serious: Yes (Hospitalization, Other)
  Sender: FDA-Public Use
  Company Number: PHHY2010BR56324

PATIENT
  Sex: Female

DRUGS (2)
  1. EXELON [Suspect]
     Dosage: 27 MG/15 CM^2
     Route: 062
     Dates: end: 20110105
  2. EXELON [Suspect]
     Dosage: 18 MG / 10 CM^2
     Route: 062

REACTIONS (3)
  - DEHYDRATION [None]
  - VOMITING [None]
  - INFECTION [None]
